FAERS Safety Report 9863059 (Version 1)
Quarter: 2014Q1

REPORT INFORMATION
  Report Type: Report from Study
  Country: CA (occurrence: CA)
  Receive Date: 20140203
  Receipt Date: 20140203
  Transmission Date: 20141002
  Serious: Yes (Other)
  Sender: FDA-Public Use
  Company Number: CA-JNJFOC-20140117957

PATIENT
  Age: 27 Year
  Sex: Male
  Weight: 74 kg

DRUGS (3)
  1. REMICADE [Suspect]
     Indication: CROHN^S DISEASE
     Route: 042
     Dates: start: 20091130
  2. PANTOLOC [Concomitant]
     Route: 065
  3. MTX [Concomitant]
     Route: 048

REACTIONS (1)
  - Fistula [Not Recovered/Not Resolved]
